FAERS Safety Report 6921484-0 (Version None)
Quarter: 2010Q3

REPORT INFORMATION
  Report Type: 
  Country: None (occurrence: None)
  Receive Date: 20100812
  Receipt Date: 20090611
  Transmission Date: 20110219
  Serious: No
  Sender: FDA-Public Use
  Company Number: A0790303A

PATIENT
  Age: 67 Year
  Sex: Female

DRUGS (1)
  1. TAGAMET HB 200 [Suspect]
     Route: 048
     Dates: start: 20090606

REACTIONS (5)
  - JOINT INJURY [None]
  - PAIN IN EXTREMITY [None]
  - POLLAKIURIA [None]
  - SOMNOLENCE [None]
  - THIRST [None]
